FAERS Safety Report 6582696-1 (Version None)
Quarter: 2010Q1

REPORT INFORMATION
  Report Type: 
  Country: None (occurrence: None)
  Receive Date: 20100216
  Receipt Date: 20100208
  Transmission Date: 20100710
  Serious: Yes (Hospitalization, Other)
  Sender: FDA-Public Use
  Company Number: BR-ABBOTT-10P-020-0623363-00

PATIENT
  Sex: Female
  Weight: 62 kg

DRUGS (5)
  1. HUMIRA [Suspect]
     Indication: PSORIASIS
     Route: 058
     Dates: start: 20091001
  2. RIVOTRIL [Concomitant]
     Indication: ANXIETY
     Route: 048
  3. RIVOTRIL [Concomitant]
     Indication: SLEEP DISORDER THERAPY
  4. LOSARTAN POTASSIUM [Concomitant]
     Indication: HYPERTENSION
     Route: 048
  5. RANITIDINE [Concomitant]
     Indication: GASTRIC DISORDER
     Dosage: 2 OR 3 TABLETS DAILY
     Route: 048
     Dates: start: 20091204, end: 20091215

REACTIONS (5)
  - CONVULSION [None]
  - ERYTHEMA [None]
  - PRURITUS [None]
  - PSORIASIS [None]
  - URTICARIA [None]
